FAERS Safety Report 8914346 (Version 1)
Quarter: 2012Q4

REPORT INFORMATION
  Report Type: 
  Country: JP (occurrence: JP)
  Receive Date: 20121118
  Receipt Date: 20121118
  Transmission Date: 20130627
  Serious: Yes (Other)
  Sender: FDA-Public Use
  Company Number: JP-ROXANE LABORATORIES, INC.-2012-RO-02363RO

PATIENT
  Age: 22 Year
  Sex: Female

DRUGS (3)
  1. RISPERIDONE [Suspect]
     Indication: SUBSTANCE-INDUCED MOOD DISORDER
     Dosage: 1 mg
  2. RISPERIDONE [Suspect]
     Dosage: 2 mg
  3. PREDNISOLONE [Suspect]
     Indication: SYSTEMIC LUPUS ERYTHEMATOSUS
     Dosage: 60 mg

REACTIONS (1)
  - Major depression [Recovered/Resolved]
